FAERS Safety Report 16662680 (Version 1)
Quarter: 2019Q3

REPORT INFORMATION
  Report Type: Spontaneous
  Country: US (occurrence: US)
  Receive Date: 20190802
  Receipt Date: 20190802
  Transmission Date: 20191004
  Serious: Yes (Other)
  Sender: FDA-Public Use
  Company Number: PHHY2019US178400

PATIENT
  Age: 17 Month

DRUGS (4)
  1. AMIODARONE [Concomitant]
     Active Substance: AMIODARONE
     Indication: PRODUCT USED FOR UNKNOWN INDICATION
     Dosage: 10 MG/KG, BID (LOADING DOSE )
     Route: 065
  2. AMIODARONE [Concomitant]
     Active Substance: AMIODARONE
     Dosage: 5 MG/KG, BID
     Route: 065
  3. EVEROLIMUS. [Suspect]
     Active Substance: EVEROLIMUS
     Dosage: 0.35 MG, BID (1.56 MG/M2 PER DAY) WITH A TARGET TROUGH LEVEL OF 8 TO 10 NG/ML
     Route: 065
  4. EVEROLIMUS. [Suspect]
     Active Substance: EVEROLIMUS
     Indication: RHABDOMYOMA
     Dosage: 0.25 MG, QD (0.25 MG; 0.08 MG/ M2 PER DAY;2 DAYS PER WEEK, TARGET TROUGH RANGE OF 8 TO 10 NG/ML )
     Route: 065

REACTIONS (5)
  - Ventricular tachycardia [Recovered/Resolved]
  - Concomitant disease aggravated [Recovered/Resolved]
  - Gastroenteritis [Recovered/Resolved]
  - Product use in unapproved indication [Unknown]
  - Pneumonia adenoviral [Recovered/Resolved]
